FAERS Safety Report 5308322-7 (Version None)
Quarter: 2007Q2

REPORT INFORMATION
  Report Type: 
  Country: None (occurrence: None)
  Receive Date: 20070420
  Receipt Date: 20070417
  Transmission Date: 20071010
  Serious: Yes (Hospitalization)
  Sender: FDA-Public Use
  Company Number: 2007PV031816

PATIENT
  Age: 55 Year
  Sex: Female
  Weight: 108.8633 kg

DRUGS (5)
  1. BYETTA [Suspect]
     Indication: DIABETES MELLITUS NON-INSULIN-DEPENDENT
     Dosage: 10 MG; 5 MCG; BID; SC
     Route: 058
     Dates: start: 20060101, end: 20060101
  2. BYETTA [Suspect]
     Indication: DIABETES MELLITUS NON-INSULIN-DEPENDENT
     Dosage: 10 MG; 5 MCG; BID; SC
     Route: 058
     Dates: start: 20060101, end: 20061224
  3. AMARYL [Concomitant]
  4. METFORMIN HCL [Concomitant]
  5. SYNTHROID [Concomitant]

REACTIONS (13)
  - BLOOD CHOLESTEROL INCREASED [None]
  - BLOOD GLUCOSE DECREASED [None]
  - CATHETERISATION CARDIAC [None]
  - DIARRHOEA [None]
  - ENERGY INCREASED [None]
  - FAECAL INCONTINENCE [None]
  - HEART RATE IRREGULAR [None]
  - INCREASED APPETITE [None]
  - NAUSEA [None]
  - OXYGEN SATURATION DECREASED [None]
  - VISION BLURRED [None]
  - WEIGHT [None]
  - WEIGHT DECREASED [None]
